FAERS Safety Report 10041937 (Version 1)
Quarter: 2014Q1

REPORT INFORMATION
  Report Type: Spontaneous
  Country: US (occurrence: US)
  Receive Date: 20140327
  Receipt Date: 20140327
  Transmission Date: 20141002
  Serious: Yes (Other)
  Sender: FDA-Public Use
  Company Number: US-ASTRAZENECA-2014SE19830

PATIENT
  Age: 80 Year
  Sex: Male

DRUGS (2)
  1. BRILINTA [Suspect]
     Indication: PERCUTANEOUS CORONARY INTERVENTION
     Route: 048
     Dates: start: 20140318, end: 20140319
  2. ASPIRIN [Concomitant]
     Dates: start: 20140318

REACTIONS (5)
  - Renal failure acute [Unknown]
  - Hemiplegia [Unknown]
  - Troponin increased [Unknown]
  - Haemorrhage intracranial [Unknown]
  - Electrocardiogram abnormal [Unknown]
